FAERS Safety Report 7455299-4 (Version None)
Quarter: 2011Q2

REPORT INFORMATION
  Report Type: 
  Country: None (occurrence: None)
  Receive Date: 20110503
  Receipt Date: 20110428
  Transmission Date: 20111010
  Serious: Yes (Death)
  Sender: FDA-Public Use
  Company Number: IE-PFIZER INC-2011091648

PATIENT
  Age: 49 Year
  Sex: Male

DRUGS (6)
  1. DURAGESIC-100 [Concomitant]
     Indication: BACK PAIN
     Dosage: 12 UG EVERY 72 HOURS
  2. OMEPRAZOLE [Concomitant]
     Indication: DYSPEPSIA
     Dosage: 20 MG, UNK
  3. EFFEXOR XR [Suspect]
     Dosage: 225 MG, UNK
     Dates: end: 20090401
  4. EFFEXOR XR [Suspect]
     Dosage: 150 MG, UNK
     Dates: start: 20090401
  5. PARACETAMOL [Concomitant]
     Indication: BACK PAIN
     Dosage: 1 G, 4X/DAY
  6. EFFEXOR XR [Suspect]
     Indication: DEPRESSION
     Dosage: 75 MG, UNK

REACTIONS (3)
  - ASPIRATION [None]
  - UPPER GASTROINTESTINAL HAEMORRHAGE [None]
  - HEPATIC STEATOSIS [None]
